FAERS Safety Report 4485036-7 (Version None)
Quarter: 2004Q4

REPORT INFORMATION
  Report Type: 
  Country: None (occurrence: None)
  Receive Date: 20041022
  Receipt Date: 20041022
  Transmission Date: 20050328
  Serious: Yes (Hospitalization)
  Sender: FDA-Public Use
  Company Number: None

PATIENT
  Age: 86 Year
  Sex: Male
  Weight: 81.6 kg

DRUGS (9)
  1. LISINOPRIL [Suspect]
     Indication: HYPERTENSION
     Dosage: 10MG, 10MG DAI, ORAL
     Route: 048
     Dates: end: 20040530
  2. RISPERIDONE [Concomitant]
  3. LISINOPRIL [Concomitant]
  4. ASPIRIN [Concomitant]
  5. CALCIUM 250MG/VITAMIN D 125 UNT [Concomitant]
  6. PIROXICAM [Concomitant]
  7. TERAZOSIN HCL [Concomitant]
  8. DOCUSATE NA [Concomitant]
  9. INDOMETHACIN [Concomitant]

REACTIONS (1)
  - ANGIONEUROTIC OEDEMA [None]
